FAERS Safety Report 6873384-2 (Version None)
Quarter: 2010Q3

REPORT INFORMATION
  Report Type: 
  Country: None (occurrence: None)
  Receive Date: 20100723
  Receipt Date: 20090507
  Transmission Date: 20110219
  Serious: No
  Sender: FDA-Public Use
  Company Number: US-PFIZER INC-2008156573

PATIENT
  Sex: Female
  Weight: 62.142 kg

DRUGS (1)
  1. CHANTIX [Suspect]
     Indication: SMOKING CESSATION THERAPY
     Dosage: 1 MG, 2X/DAY
     Dates: start: 20081106, end: 20081204

REACTIONS (4)
  - CONSTIPATION [None]
  - CRYING [None]
  - EMOTIONAL DISORDER [None]
  - IRRITABILITY [None]
